FAERS Safety Report 10185932 (Version 1)
Quarter: 2014Q2

REPORT INFORMATION
  Report Type: Spontaneous
  Country: US (occurrence: None)
  Receive Date: 20140520
  Receipt Date: 20140520
  Transmission Date: 20141212
  Serious: Yes (Hospitalization)
  Sender: FDA-Public Use
  Company Number: None

PATIENT
  Age: 39 Year
  Sex: Male

DRUGS (15)
  1. TACROLIMUS [Suspect]
     Indication: IMMUNOSUPPRESSION
     Route: 048
     Dates: start: 20121105, end: 20121108
  2. SULFAMETHOXAZOLE-TRIMETHOPRIM [Concomitant]
  3. DOCUSATE [Concomitant]
  4. MYCOPHENOLATE [Concomitant]
  5. PRAVASTATIN [Concomitant]
  6. PREDNISONE [Concomitant]
  7. RANITIDINE [Concomitant]
  8. TACROLIMUS [Concomitant]
  9. VALACYCLOVIR [Concomitant]
  10. ASPIRIN [Concomitant]
  11. MULTIVITAMIN [Concomitant]
  12. METOPROLOL TARTRATE [Concomitant]
  13. OXYCODONE [Concomitant]
  14. AMLODIPINE [Concomitant]
  15. NYSTATIN [Concomitant]

REACTIONS (2)
  - Hyperkalaemia [None]
  - Electrocardiogram T wave peaked [None]
